FAERS Safety Report 7418559-9 (Version None)
Quarter: 2011Q2

REPORT INFORMATION
  Report Type: 
  Country: None (occurrence: None)
  Receive Date: 20110415
  Receipt Date: 20110411
  Transmission Date: 20111010
  Serious: Yes (Death, Other)
  Sender: FDA-Public Use
  Company Number: PHHY2011US30124

PATIENT
  Age: 8 Year
  Sex: Female

DRUGS (3)
  1. PREDNISONE [Concomitant]
     Dosage: UNK
  2. CYCLOSPORINE [Suspect]
     Indication: STEM CELL TRANSPLANT
     Dosage: UNK
  3. AMLODIPINE [Concomitant]
     Dosage: UNK

REACTIONS (12)
  - BRAIN OEDEMA [None]
  - HEADACHE [None]
  - DYSPNOEA [None]
  - MYDRIASIS [None]
  - SLOW RESPONSE TO STIMULI [None]
  - RESPIRATORY FAILURE [None]
  - PLEURAL EFFUSION [None]
  - POSTERIOR REVERSIBLE ENCEPHALOPATHY SYNDROME [None]
  - HYPERTENSION [None]
  - PETECHIAE [None]
  - HYDROCEPHALUS [None]
  - HAEMORRHAGE [None]
